FAERS Safety Report 8696073 (Version 2)
Quarter: 2013Q1

REPORT INFORMATION
  Report Type: Spontaneous
  Country: US (occurrence: US)
  Receive Date: 20120801
  Receipt Date: 20130307
  Transmission Date: 20140127
  Serious: No
  Sender: FDA-Public Use
  Company Number: US-BIOGENIDEC-2012BI027169

PATIENT
  Age: 52 None
  Sex: Female

DRUGS (5)
  1. AVONEX [Suspect]
     Indication: MULTIPLE SCLEROSIS
     Route: 030
  2. AVONEX [Suspect]
     Indication: MULTIPLE SCLEROSIS
     Route: 030
     Dates: start: 20000101
  3. AVONEX [Suspect]
     Indication: MULTIPLE SCLEROSIS
     Route: 030
     Dates: start: 20050607, end: 20080608
  4. AVONEX [Suspect]
     Indication: MULTIPLE SCLEROSIS
     Route: 030
     Dates: start: 20050607
  5. AVONEX [Suspect]
     Indication: MULTIPLE SCLEROSIS
     Route: 030

REACTIONS (25)
  - Sinusitis [Not Recovered/Not Resolved]
  - Drug dose omission [Unknown]
  - Contusion [Unknown]
  - Injection site haemorrhage [Unknown]
  - Clumsiness [Unknown]
  - Hemiparesis [Unknown]
  - Blood pressure abnormal [Unknown]
  - Attention deficit/hyperactivity disorder [Unknown]
  - Frustration [Unknown]
  - Amnesia [Unknown]
  - Phobia [Unknown]
  - Mobility decreased [Unknown]
  - Dysstasia [Unknown]
  - Bunion [Unknown]
  - Weight increased [Unknown]
  - Bronchitis [Unknown]
  - Multiple allergies [Unknown]
  - Nausea [Unknown]
  - Fatigue [Not Recovered/Not Resolved]
  - Influenza like illness [Unknown]
  - Pain [Unknown]
  - Fibromyalgia [Unknown]
  - Asthenia [Unknown]
  - Depression [Unknown]
  - Headache [Unknown]
